FAERS Safety Report 8017189-8 (Version None)
Quarter: 2012Q1

REPORT INFORMATION
  Report Type: 
  Country: None (occurrence: None)
  Receive Date: 20120102
  Receipt Date: 20111221
  Transmission Date: 20120608
  Serious: Yes (Hospitalization, Disabling, Congenital Anomaly, Other)
  Sender: FDA-Public Use
  Company Number: AT-ROCHE-1003949

PATIENT
  Age: 52 Year
  Sex: Male
  Weight: 108 kg

DRUGS (3)
  1. ALIMTA [Suspect]
     Indication: CHEMOTHERAPY
     Dates: start: 20110324, end: 20110713
  2. AVASTIN [Suspect]
     Indication: CHEMOTHERAPY
     Dates: start: 20110324, end: 20110921
  3. CARBOPLATIN [Suspect]
     Indication: CHEMOTHERAPY
     Route: 042
     Dates: start: 20110324, end: 20110713

REACTIONS (2)
  - CARDIAC FAILURE [None]
  - DYSPNOEA [None]
